FAERS Safety Report 8241659 (Version 3)
Quarter: 2013Q1

REPORT INFORMATION
  Report Type: Report from Study
  Country: US (occurrence: US)
  Receive Date: 20111111
  Receipt Date: 20130325
  Transmission Date: 20140127
  Serious: Yes (Hospitalization, Other)
  Sender: FDA-Public Use
  Company Number: US-ABBOTT-11P-163-0872337-00

PATIENT
  Age: 72 None
  Sex: Female
  Weight: 81.27 kg

DRUGS (13)
  1. HUMIRA 40 MG/0.8 ML PEN [Suspect]
     Indication: PSORIASIS
     Dates: start: 20100602, end: 20101020
  2. HUMIRA 40 MG/0.8 ML PEN [Suspect]
     Dates: start: 20101117
  3. OXYCODONE [Suspect]
     Indication: ABDOMINAL PAIN
     Dates: start: 201210, end: 201210
  4. TRAMADOL [Suspect]
     Indication: ARTHRALGIA
     Dates: start: 201011
  5. UNNAMED ANTIBIOTIC [Suspect]
     Indication: LABYRINTHITIS
     Dates: start: 201301
  6. HYDROCHLOROTHIAZIDE [Concomitant]
     Indication: HYPERTENSION
  7. POTASSIUM [Concomitant]
     Indication: MINERAL SUPPLEMENTATION
  8. POTASSIUM [Concomitant]
     Indication: MINERAL SUPPLEMENTATION
  9. LORAZEPAM [Concomitant]
     Indication: ANXIETY
  10. ASPIRIN [Concomitant]
     Indication: PRODUCT USED FOR UNKNOWN INDICATION
  11. VITAMIN D NOS [Concomitant]
     Indication: PRODUCT USED FOR UNKNOWN INDICATION
  12. CLOBETASOL [Concomitant]
     Indication: PSORIASIS
  13. KLONOPIN [Concomitant]
     Indication: ANXIETY

REACTIONS (20)
  - Osteoarthritis [Recovered/Resolved]
  - Psoriasis [Not Recovered/Not Resolved]
  - Rash macular [Recovered/Resolved]
  - Basal cell carcinoma [Recovered/Resolved]
  - Micturition urgency [Recovered/Resolved]
  - Urinary tract infection [Recovered/Resolved]
  - Scar [Not Recovered/Not Resolved]
  - Impaired healing [Unknown]
  - Chondropathy [Recovered/Resolved]
  - Gallbladder disorder [Recovered/Resolved]
  - Abdominal pain [Recovered/Resolved]
  - Eyelid ptosis [Recovered/Resolved with Sequelae]
  - Nerve injury [Recovered/Resolved with Sequelae]
  - Gastrooesophageal reflux disease [Not Recovered/Not Resolved]
  - Agitation [Not Recovered/Not Resolved]
  - Dizziness [Recovered/Resolved]
  - Labyrinthitis [Recovered/Resolved]
  - Hearing impaired [Recovered/Resolved]
  - Fungal infection [Recovered/Resolved]
  - Arthralgia [Recovered/Resolved]
